FAERS Safety Report 5013449-3 (Version None)
Quarter: 2006Q2

REPORT INFORMATION
  Report Type: 
  Country: None (occurrence: None)
  Receive Date: 20060530
  Receipt Date: 20060516
  Transmission Date: 20061013
  Serious: Yes (Other)
  Sender: FDA-Public Use
  Company Number: 2006GB00868

PATIENT
  Age: 70 Year
  Sex: Female

DRUGS (4)
  1. CRESTOR [Suspect]
     Route: 048
     Dates: start: 20060420, end: 20060426
  2. WARFANT [Concomitant]
  3. LANOXIN [Concomitant]
  4. FRUMIL [Concomitant]

REACTIONS (4)
  - DRY MOUTH [None]
  - PRURITUS [None]
  - SKIN DISORDER [None]
  - XEROPHTHALMIA [None]
